FAERS Safety Report 6179246-0 (Version None)
Quarter: 2009Q2

REPORT INFORMATION
  Report Type: 
  Country: None (occurrence: None)
  Receive Date: 20090505
  Receipt Date: 20090312
  Transmission Date: 20091009
  Serious: No
  Sender: FDA-Public Use
  Company Number: US-BAYER-200915793NA

PATIENT
  Age: 36 Year
  Sex: Female
  Weight: 82 kg

DRUGS (3)
  1. MIRENA [Suspect]
     Indication: CONTRACEPTION
     Dosage: CONTINUOUS
     Route: 015
     Dates: start: 20080901
  2. CELEXA [Concomitant]
     Dosage: 20 MG/DAY
     Route: 048
  3. TOPROL-XL [Concomitant]
     Dosage: 50 MG Q AM AND 25 MG HS
     Route: 048

REACTIONS (2)
  - ABDOMINAL DISTENSION [None]
  - WEIGHT INCREASED [None]
